FAERS Safety Report 21091023 (Version 1)
Quarter: 2022Q3

REPORT INFORMATION
  Report Type: Spontaneous
  Country: FR (occurrence: FR)
  Receive Date: 20220716
  Receipt Date: 20220716
  Transmission Date: 20221027
  Serious: Yes (Hospitalization, Other)
  Sender: FDA-Public Use
  Company Number: FR-AFSSAPS-CN20221345

PATIENT
  Age: 20 Year
  Sex: Female
  Weight: 150 kg

DRUGS (4)
  1. ACETAMINOPHEN [Suspect]
     Active Substance: ACETAMINOPHEN
     Indication: Product used for unknown indication
     Dosage: 24 DOSAGE FORM (TOTAL)
     Route: 048
     Dates: start: 20220610, end: 20220610
  2. NEFOPAM [Suspect]
     Active Substance: NEFOPAM
     Indication: Product used for unknown indication
     Dosage: 1 DOSAGE FORM (TOTAL 18 MG)
     Route: 048
     Dates: start: 20220610, end: 20220610
  3. PROZAC [Suspect]
     Active Substance: FLUOXETINE HYDROCHLORIDE
     Indication: Product used for unknown indication
     Dosage: 140 MILLIGRAM (TOTAL,7 TABLETS AT 20MG)
     Route: 048
     Dates: start: 20220610, end: 20220610
  4. CLOBAZAM [Suspect]
     Active Substance: CLOBAZAM
     Indication: Product used for unknown indication
     Dosage: 200 MILLIGRAM (20 TABLETS AT 10MG)
     Route: 048
     Dates: start: 20220610, end: 20220610

REACTIONS (4)
  - Electrocardiogram QT prolonged [Recovered/Resolved]
  - Toxicity to various agents [Recovered/Resolved]
  - Abdominal pain [Recovered/Resolved]
  - Tachycardia [Recovered/Resolved]

NARRATIVE: CASE EVENT DATE: 20220610
